FAERS Safety Report 15143926 (Version 1)
Quarter: 2018Q3

REPORT INFORMATION
  Report Type: Spontaneous
  Country: US (occurrence: US)
  Receive Date: 20180618
  Receipt Date: 20180618
  Transmission Date: 20181010
  Serious: No
  Sender: FDA-Public Use
  Company Number: None

PATIENT
  Age: 81 Year
  Sex: Female
  Weight: 56.25 kg

DRUGS (2)
  1. DAPTOMYCIN 500MG VIAL HOSPIRA [Suspect]
     Active Substance: DAPTOMYCIN
  2. DAPTOMYCIN 500MG VIAL HOSPIRA [Suspect]
     Active Substance: DAPTOMYCIN
     Indication: OSTEOMYELITIS
     Route: 042
     Dates: start: 20180316

REACTIONS (3)
  - Infusion related reaction [None]
  - Chills [None]
  - Myalgia [None]

NARRATIVE: CASE EVENT DATE: 20180322
